FAERS Safety Report 20583616 (Version 1)
Quarter: 2022Q1

REPORT INFORMATION
  Report Type: Report from Study
  Country: IT (occurrence: IT)
  Receive Date: 20220311
  Receipt Date: 20220311
  Transmission Date: 20220423
  Serious: Yes (Hospitalization)
  Sender: FDA-Public Use
  Company Number: None

PATIENT
  Age: 84 Year
  Sex: Female

DRUGS (10)
  1. MEDROL [Suspect]
     Active Substance: METHYLPREDNISOLONE
     Indication: Pericardial effusion
     Dosage: 1 DF, 1X/DAY
     Dates: start: 20220126, end: 20220129
  2. PANTOPRAZOLE SODIUM [Concomitant]
     Active Substance: PANTOPRAZOLE SODIUM
     Dosage: UNK
  3. PIROXICAM [Concomitant]
     Active Substance: PIROXICAM
     Dosage: UNK
  4. DILTIAZEM HYDROCHLORIDE [Concomitant]
     Active Substance: DILTIAZEM HYDROCHLORIDE
     Dosage: UNK
  5. COLCHICINE [Concomitant]
     Active Substance: COLCHICINE
  6. SPIRIVA [Concomitant]
     Active Substance: TIOTROPIUM BROMIDE MONOHYDRATE
  7. TRAZODONE HYDROCHLORIDE [Concomitant]
     Active Substance: TRAZODONE HYDROCHLORIDE
  8. FUROSEMIDE [Concomitant]
     Active Substance: FUROSEMIDE
  9. CANRENOIC ACID [Concomitant]
     Active Substance: CANRENOIC ACID
  10. OXYGEN [Concomitant]
     Active Substance: OXYGEN

REACTIONS (1)
  - Hyperleukocytosis [Not Recovered/Not Resolved]

NARRATIVE: CASE EVENT DATE: 20220129
